FAERS Safety Report 10050324 (Version 1)
Quarter: 2014Q1

REPORT INFORMATION
  Report Type: Spontaneous
  Country: US (occurrence: None)
  Receive Date: 20140331
  Receipt Date: 20140331
  Transmission Date: 20141002
  Serious: Yes (Other)
  Sender: FDA-Public Use
  Company Number: None

PATIENT
  Age: 12 Year
  Sex: Female
  Weight: 33.57 kg

DRUGS (3)
  1. SERTRALINE [Suspect]
     Indication: ANXIETY
     Dosage: 1/2 PILL (12.5 MG)
     Route: 048
     Dates: start: 20140311, end: 20140321
  2. SERTRALINE [Suspect]
     Indication: DEPRESSION
     Dosage: 1/2 PILL (12.5 MG)
     Route: 048
     Dates: start: 20140311, end: 20140321
  3. GROWTH HORMONE [Concomitant]

REACTIONS (3)
  - Neck pain [None]
  - Musculoskeletal stiffness [None]
  - Dystonia [None]
